FAERS Safety Report 5871330-1 (Version None)
Quarter: 2008Q3

REPORT INFORMATION
  Report Type: 
  Country: None (occurrence: None)
  Receive Date: 20080904
  Receipt Date: 20080904
  Transmission Date: 20090109
  Serious: Yes (Disabling, Other)
  Sender: FDA-Public Use
  Company Number: None

PATIENT
  Age: 62 Year
  Sex: Female
  Weight: 73.0291 kg

DRUGS (5)
  1. LEVAQUIN [Suspect]
     Indication: INFECTION
     Dosage: 500 MG ONCE DAILY 14 DAYS
     Route: 042
     Dates: start: 20080423, end: 20080425
  2. LEVAQUIN [Suspect]
     Indication: NEPHROLITHIASIS
     Dosage: 500 MG ONCE DAILY 14 DAYS
     Route: 042
     Dates: start: 20080423, end: 20080425
  3. LEVAQUIN [Suspect]
     Indication: INFECTION
     Dosage: 500 MG ONCE DAILY 14 DAYS
     Route: 042
     Dates: start: 20080426
  4. LEVAQUIN [Suspect]
     Indication: NEPHROLITHIASIS
     Dosage: 500 MG ONCE DAILY 14 DAYS
     Route: 042
     Dates: start: 20080426
  5. LEVAQUIN [Suspect]
     Indication: STENT REMOVAL
     Dosage: 500 MG ONCE DAILY 5 DAYS
     Dates: start: 20080522

REACTIONS (12)
  - AGEUSIA [None]
  - ARTHRALGIA [None]
  - FATIGUE [None]
  - INSOMNIA [None]
  - INTESTINAL FUNCTIONAL DISORDER [None]
  - JOINT CREPITATION [None]
  - MUSCLE SPASMS [None]
  - MUSCULOSKELETAL PAIN [None]
  - NIGHTMARE [None]
  - PAROSMIA [None]
  - PERIARTHRITIS [None]
  - WEIGHT DECREASED [None]
